FAERS Safety Report 16705389 (Version 1)
Quarter: 2019Q3

REPORT INFORMATION
  Report Type: Spontaneous
  Country: US (occurrence: US)
  Receive Date: 20190815
  Receipt Date: 20190815
  Transmission Date: 20191004
  Serious: No
  Sender: FDA-Public Use
  Company Number: US-009507513-1907USA015941

PATIENT
  Sex: Male

DRUGS (1)
  1. CARBIDOPA (+) LEVODOPA [Suspect]
     Active Substance: CARBIDOPA\LEVODOPA
     Indication: PARKINSON^S DISEASE
     Dosage: 1 TABLET EVERY 2 HOURS WHILE AWAKE AND 1 TABLET EVERY 2.5-3 HOURS AT NIGHT
     Route: 048

REACTIONS (2)
  - Therapeutic product effect decreased [Not Recovered/Not Resolved]
  - Product availability issue [Not Recovered/Not Resolved]
